FAERS Safety Report 22525203 (Version 1)
Quarter: 2023Q2

REPORT INFORMATION
  Report Type: Report from Study
  Country: CA (occurrence: None)
  Receive Date: 20230606
  Receipt Date: 20230606
  Transmission Date: 20230721
  Serious: Yes (Death, Other)
  Sender: FDA-Public Use
  Company Number: 2023A127445

PATIENT
  Sex: Male

DRUGS (6)
  1. TAGRISSO [Suspect]
     Active Substance: OSIMERTINIB
     Indication: Non-small cell lung cancer metastatic
     Route: 048
     Dates: start: 20220719
  2. ASPIRIN [Concomitant]
     Active Substance: ASPIRIN
  3. DEXAMETHASONE [Concomitant]
     Active Substance: DEXAMETHASONE
  4. DILTIAZEM [Concomitant]
     Active Substance: DILTIAZEM
  5. EFFEXOR [Concomitant]
     Active Substance: VENLAFAXINE HYDROCHLORIDE
  6. RABEPRAZOLE [Concomitant]
     Active Substance: RABEPRAZOLE

REACTIONS (1)
  - Death [Fatal]
